FAERS Safety Report 20981434 (Version 5)
Quarter: 2022Q4

REPORT INFORMATION
  Report Type: Report from Study
  Country: US (occurrence: US)
  Receive Date: 20220620
  Receipt Date: 20221227
  Transmission Date: 20230112
  Serious: No
  Sender: FDA-Public Use
  Company Number: US-NOVARTISTESTPH-NVSC2022US139847

PATIENT
  Age: 30 Year
  Sex: Male

DRUGS (1)
  1. KESIMPTA [Suspect]
     Active Substance: OFATUMUMAB
     Indication: Multiple sclerosis
     Dosage: 20 MG, QMO
     Route: 058
     Dates: start: 20220615

REACTIONS (6)
  - Influenza like illness [Recovering/Resolving]
  - Pain [Recovering/Resolving]
  - Pyrexia [Recovering/Resolving]
  - Nasal congestion [Recovering/Resolving]
  - Muscle spasms [Recovering/Resolving]
  - Back pain [Recovering/Resolving]

NARRATIVE: CASE EVENT DATE: 20220615
